FAERS Safety Report 5113186-0 (Version None)
Quarter: 2006Q3

REPORT INFORMATION
  Report Type: 
  Country: None (occurrence: None)
  Receive Date: 20060731
  Receipt Date: 20060606
  Transmission Date: 20061208
  Serious: No
  Sender: FDA-Public Use
  Company Number: 2006PV015348

PATIENT
  Age: 62 Year
  Sex: Male
  Weight: 117.028 kg

DRUGS (7)
  1. BYETTA [Suspect]
     Indication: DIABETES MELLITUS NON-INSULIN-DEPENDENT
     Dosage: SEE IMAGE
     Route: 058
  2. METFORMIN HCL [Concomitant]
  3. GLIMEPIRIDE [Concomitant]
  4. AMLODIPINE [Concomitant]
  5. METOPROLOL-SLOW RELEASE [Concomitant]
  6. ALLOPURINOL [Concomitant]
  7. ROSUVASTATN [Concomitant]

REACTIONS (3)
  - ABDOMINAL DISTENSION [None]
  - NAUSEA [None]
  - WEIGHT DECREASED [None]
